FAERS Safety Report 7571881-8 (Version None)
Quarter: 2011Q2

REPORT INFORMATION
  Report Type: 
  Country: None (occurrence: None)
  Receive Date: 20110624
  Receipt Date: 20100622
  Transmission Date: 20111010
  Serious: No
  Sender: FDA-Public Use
  Company Number: A0866563A

PATIENT
  Age: 77 Year
  Sex: Female

DRUGS (4)
  1. SODIUM CHLORIDE 0.9% [Concomitant]
  2. VERAMYST [Suspect]
     Dosage: 2SPR PER DAY
     Route: 045
     Dates: start: 20100501
  3. ASPIRIN [Concomitant]
  4. BLOOD PRESSURE MEDICATION [Concomitant]

REACTIONS (1)
  - DRUG INEFFECTIVE [None]
